FAERS Safety Report 5465549-1 (Version None)
Quarter: 2007Q3

REPORT INFORMATION
  Report Type: 
  Country: None (occurrence: None)
  Receive Date: 20070924
  Receipt Date: 19930304
  Transmission Date: 20080115
  Serious: Yes (Other)
  Sender: FDA-Public Use
  Company Number: FR-PFIZER INC-2006122741

PATIENT
  Sex: Male

DRUGS (9)
  1. IRINOTECAN HCL [Suspect]
     Indication: LUNG CARCINOMA CELL TYPE UNSPECIFIED STAGE 0
     Dosage: DAILY DOSE:665MG-FREQ:EVERY 3 WEEKS
     Route: 042
     Dates: start: 19920916, end: 19920916
  2. AMILORIDE HYDROCHLORIDE [Concomitant]
     Route: 048
  3. BENTONITE [Concomitant]
     Route: 048
  4. BUFLOMEDIL [Concomitant]
     Route: 048
  5. CIPROFIBRATE [Concomitant]
     Route: 048
  6. FLUNITRAZEPAM [Concomitant]
     Route: 048
  7. HYDROCHLOROTHIAZIDE [Concomitant]
     Route: 048
  8. MORPHINE [Concomitant]
     Dosage: DAILY DOSE:80MG-FREQ:EVERY DAY
     Route: 048
     Dates: start: 19920904, end: 19921010
  9. TIMOLOL MALEATE [Concomitant]
     Route: 048

REACTIONS (1)
  - ADRENOCORTICAL INSUFFICIENCY ACUTE [None]
